FAERS Safety Report 15104007 (Version 2)
Quarter: 2018Q3

REPORT INFORMATION
  Report Type: Report from Study
  Country: IT (occurrence: IT)
  Receive Date: 20180703
  Receipt Date: 20180713
  Transmission Date: 20181010
  Serious: Yes (Other)
  Sender: FDA-Public Use
  Company Number: IT-TEVA-2018-IT-919508

PATIENT
  Age: 26 Year
  Sex: Female

DRUGS (8)
  1. ARIPIPRAZOLO TEVA 10 MG COMPRESSE [Suspect]
     Active Substance: ARIPIPRAZOLE
     Indication: INTENTIONAL SELF-INJURY
  2. EFEXOR 150 MG CAPSULE RIGIDE A RILASCIO PROLUNGATO [Suspect]
     Active Substance: VENLAFAXINE HYDROCHLORIDE
     Indication: INTENTIONAL SELF-INJURY
  3. DELORAZEPAM ALMUS 1 MG/ML GOCCE ORALI, SOLUZIONE [Suspect]
     Active Substance: DELORAZEPAM
     Indication: INTENTIONAL SELF-INJURY
  4. DALMADORM 15 MG CAPSULE RIGIDE [Suspect]
     Active Substance: FLURAZEPAM\FLURAZEPAM HYDROCHLORIDE
     Indication: INSOMNIA
     Route: 048
     Dates: start: 20170330, end: 20170330
  5. ARIPIPRAZOLO TEVA 10 MG COMPRESSE [Suspect]
     Active Substance: ARIPIPRAZOLE
     Indication: SCHIZOPHRENIA
     Route: 048
     Dates: start: 20170330, end: 20170330
  6. DELORAZEPAM ALMUS 1 MG/ML GOCCE ORALI, SOLUZIONE [Suspect]
     Active Substance: DELORAZEPAM
     Indication: ANXIETY
     Route: 048
     Dates: start: 20170330, end: 20170330
  7. DALMADORM 15 MG CAPSULE RIGIDE [Suspect]
     Active Substance: FLURAZEPAM\FLURAZEPAM HYDROCHLORIDE
     Indication: INTENTIONAL SELF-INJURY
  8. EFEXOR 150 MG CAPSULE RIGIDE A RILASCIO PROLUNGATO [Suspect]
     Active Substance: VENLAFAXINE HYDROCHLORIDE
     Indication: MAJOR DEPRESSION
     Route: 048
     Dates: start: 20170330, end: 20170330

REACTIONS (2)
  - Eating disorder [Recovering/Resolving]
  - Personality disorder [Recovering/Resolving]

NARRATIVE: CASE EVENT DATE: 20170330
